FAERS Safety Report 16827779 (Version 1)
Quarter: 2019Q4

REPORT INFORMATION
  Report Type: Spontaneous
  Country: US (occurrence: US)
  Receive Date: 20190919
  Receipt Date: 20190919
  Transmission Date: 20200122
  Serious: No
  Sender: FDA-Public Use
  Company Number: None

PATIENT
  Age: 17 Year
  Sex: Male
  Weight: 112.5 kg

DRUGS (4)
  1. LURASIDONE HCL [Suspect]
     Active Substance: LURASIDONE
     Indication: AFFECTIVE DISORDER
     Dosage: ?          QUANTITY:1 TABLET(S);?
     Route: 048
     Dates: start: 20190917, end: 20190917
  2. LITHIUM. [Concomitant]
     Active Substance: LITHIUM
  3. VITAMIN D [Concomitant]
     Active Substance: VITAMIN D NOS
  4. GUANFACINE. [Concomitant]
     Active Substance: GUANFACINE

REACTIONS (9)
  - Hyperaesthesia teeth [None]
  - Nausea [None]
  - Temperature intolerance [None]
  - Hallucination [None]
  - Somnolence [None]
  - Therapy cessation [None]
  - Vomiting [None]
  - Crying [None]
  - Inappropriate affect [None]

NARRATIVE: CASE EVENT DATE: 20190917
